FAERS Safety Report 10656545 (Version 3)
Quarter: 2015Q1

REPORT INFORMATION
  Report Type: Spontaneous
  Country: BR (occurrence: BR)
  Receive Date: 20141216
  Receipt Date: 20150122
  Transmission Date: 20150720
  Serious: Yes (Other)
  Sender: FDA-Public Use
  Company Number: PHHY2014BR164175

PATIENT
  Age: 45 Year
  Sex: Female

DRUGS (2)
  1. AMLODIPINE [Suspect]
     Active Substance: AMLODIPINE BESYLATE
     Indication: HYPERTENSION
     Dosage: 5 MG, QD
     Route: 065
  2. VALSARTAN. [Suspect]
     Active Substance: VALSARTAN
     Indication: HYPERTENSION
     Dosage: 160 MG, QD
     Route: 065

REACTIONS (7)
  - Acromegaly [Unknown]
  - Head deformity [Unknown]
  - Limb deformity [Unknown]
  - Impaired fasting glucose [Unknown]
  - Pituitary tumour [Unknown]
  - Intracranial tumour haemorrhage [Unknown]
  - Goitre [Unknown]
